FAERS Safety Report 5268283-6 (Version None)
Quarter: 2007Q1

REPORT INFORMATION
  Report Type: 
  Country: None (occurrence: None)
  Receive Date: 20070314
  Receipt Date: 20070314
  Transmission Date: 20070707
  Serious: Yes (Hospitalization)
  Sender: FDA-Public Use
  Company Number: None

PATIENT
  Sex: Male
  Weight: 120.7 kg

DRUGS (1)
  1. ROSIGLITAZONE [Suspect]
     Dosage: ROSIGLITAZONE 4MG QDAILY PO
     Route: 048

REACTIONS (6)
  - CARDIAC FAILURE [None]
  - DYSPNOEA [None]
  - DYSPNOEA EXERTIONAL [None]
  - OEDEMA PERIPHERAL [None]
  - ORTHOPNOEA [None]
  - SWELLING FACE [None]
